FAERS Safety Report 9648349 (Version 2)
Quarter: 2013Q4

REPORT INFORMATION
  Report Type: Spontaneous
  Country: US (occurrence: US)
  Receive Date: 20131028
  Receipt Date: 20131028
  Transmission Date: 20140711
  Serious: Yes (Hospitalization)
  Sender: FDA-Public Use
  Company Number: US-009507513-2010SP060414

PATIENT
  Age: 58 Year
  Sex: Male

DRUGS (6)
  1. FELBATOL [Suspect]
     Indication: CONVULSION
     Dosage: 1200 MG, TID
     Route: 048
     Dates: start: 201008, end: 20101030
  2. FELBATOL [Suspect]
     Dosage: 400 MG, QD
     Route: 048
     Dates: start: 20101030, end: 20101101
  3. FELBATOL [Suspect]
     Dosage: UNK
     Route: 048
     Dates: start: 20101101
  4. CITALOPRAM [Concomitant]
  5. DEPAKOTE [Concomitant]
     Dosage: UNK
     Route: 048
     Dates: start: 201007
  6. BETHANECHOL CHLORIDE [Concomitant]

REACTIONS (4)
  - Dehydration [Not Recovered/Not Resolved]
  - Nausea [Not Recovered/Not Resolved]
  - Vomiting [Not Recovered/Not Resolved]
  - Incorrect dose administered [Unknown]
